FAERS Safety Report 6178114-8 (Version None)
Quarter: 2009Q2

REPORT INFORMATION
  Report Type: 
  Country: None (occurrence: None)
  Receive Date: 20090504
  Receipt Date: 20090424
  Transmission Date: 20091009
  Serious: Yes (Hospitalization)
  Sender: FDA-Public Use
  Company Number: JP-PFIZER INC-2009196436

PATIENT

DRUGS (7)
  1. CELECOX [Suspect]
     Indication: OSTEOARTHRITIS
     Dosage: 100 MG, 2X/DAY
     Route: 048
     Dates: start: 20090319, end: 20090401
  2. CELECOX [Suspect]
  3. ADALAT CC [Concomitant]
     Dosage: UNK
     Dates: start: 20080417
  4. VALSARTAN [Concomitant]
     Dosage: UNK
     Route: 048
     Dates: start: 20070726
  5. BEZATOL - SLOW RELEASE [Concomitant]
     Dosage: UNK
     Dates: start: 20040108
  6. PURSENNID [Concomitant]
     Dosage: UNK
     Route: 048
     Dates: start: 20040108
  7. NEUROTROPIN [Concomitant]
     Dosage: UNK
     Route: 048
     Dates: start: 20050519, end: 20090331

REACTIONS (1)
  - DRUG ERUPTION [None]
